FAERS Safety Report 23612894 (Version 1)
Quarter: 2024Q1

REPORT INFORMATION
  Report Type: Report from Study
  Country: DE (occurrence: DE)
  Receive Date: 20240308
  Receipt Date: 20240308
  Transmission Date: 20240409
  Serious: Yes (Other)
  Sender: FDA-Public Use
  Company Number: DE-PFM-2024-01448

PATIENT
  Sex: Male
  Weight: 70 kg

DRUGS (3)
  1. BRAFTOVI [Suspect]
     Active Substance: ENCORAFENIB
     Indication: Colorectal cancer
     Dosage: 300 MG, DAILY
     Route: 048
     Dates: start: 20230905, end: 20231123
  2. CETUXIMAB [Suspect]
     Active Substance: CETUXIMAB
     Indication: Colorectal cancer
     Dosage: 250 MG/M2, WEEKLY
     Route: 042
     Dates: start: 20230907, end: 20231120
  3. CETUXIMAB [Suspect]
     Active Substance: CETUXIMAB
     Dosage: UNK
     Route: 065
     Dates: start: 20231122

REACTIONS (3)
  - Thrombocytopenia [Recovered/Resolved]
  - General physical health deterioration [Not Recovered/Not Resolved]
  - Fractured sacrum [Not Recovered/Not Resolved]

NARRATIVE: CASE EVENT DATE: 20231110
